FAERS Safety Report 5723459-6 (Version None)
Quarter: 2008Q2

REPORT INFORMATION
  Report Type: 
  Country: None (occurrence: None)
  Receive Date: 20080425
  Receipt Date: 20080328
  Transmission Date: 20081010
  Serious: Yes (Other)
  Sender: FDA-Public Use
  Company Number: 2008S1005271

PATIENT
  Sex: Male

DRUGS (1)
  1. DICLOFENAC SODIUM [Suspect]
     Dosage: TRANSPLACENTAL, TRANSPLACENTAL
     Route: 064

REACTIONS (4)
  - DUCTUS ARTERIOSUS PREMATURE CLOSURE [None]
  - MATERNAL DRUGS AFFECTING FOETUS [None]
  - PULMONARY HYPERTENSION [None]
  - RIGHT VENTRICULAR FAILURE [None]
